FAERS Safety Report 8371674-8 (Version None)
Quarter: 2012Q2

REPORT INFORMATION
  Report Type: 
  Country: None (occurrence: None)
  Receive Date: 20120518
  Receipt Date: 20120514
  Transmission Date: 20120825
  Serious: Yes (Death)
  Sender: FDA-Public Use
  Company Number: DE-AMGEN-DEUSP2012030252

PATIENT
  Sex: Male

DRUGS (7)
  1. RITUXIMAB [Suspect]
     Indication: NON-HODGKIN'S LYMPHOMA
  2. DEXAMETHASONE [Suspect]
     Indication: NON-HODGKIN'S LYMPHOMA
  3. VINDESINE [Suspect]
     Indication: NON-HODGKIN'S LYMPHOMA
  4. DOXORUBICIN HCL [Suspect]
     Indication: NON-HODGKIN'S LYMPHOMA
  5. CYTOXAN [Suspect]
     Indication: NON-HODGKIN'S LYMPHOMA
  6. NEUPOGEN [Suspect]
     Indication: NON-HODGKIN'S LYMPHOMA
  7. PREDNISONE [Suspect]
     Indication: NON-HODGKIN'S LYMPHOMA

REACTIONS (1)
  - DEATH [None]
